FAERS Safety Report 7449124-5 (Version None)
Quarter: 2011Q2

REPORT INFORMATION
  Report Type: 
  Country: None (occurrence: None)
  Receive Date: 20110502
  Receipt Date: 20110307
  Transmission Date: 20111010
  Serious: Yes (Other)
  Sender: FDA-Public Use
  Company Number: US-BAYER-2010-002815

PATIENT
  Age: 31 Year
  Sex: Female
  Weight: 47.619 kg

DRUGS (4)
  1. DROSPIRENONE AND ETHINYL ESTRADIOL [Suspect]
     Dosage: UNK UNK, QD
     Route: 048
     Dates: start: 20030501, end: 20051001
  2. YASMIN [Suspect]
     Indication: CONTRACEPTION
     Dosage: UNK
     Route: 048
     Dates: start: 20030501, end: 20051001
  3. ANALGESICS [Concomitant]
     Indication: PAIN MANAGEMENT
  4. YAZ [Suspect]
     Indication: PRODUCT USED FOR UNKNOWN INDICATION
     Dosage: UNK UNK, QD
     Route: 048
     Dates: start: 20030501, end: 20051001

REACTIONS (3)
  - PAIN [None]
  - OEDEMA [None]
  - THROMBOSIS [None]
